FAERS Safety Report 13603418 (Version 1)
Quarter: 2017Q2

REPORT INFORMATION
  Report Type: Spontaneous
  Country: US (occurrence: US)
  Receive Date: 20170601
  Receipt Date: 20170601
  Transmission Date: 20170912
  Serious: No
  Sender: FDA-Public Use
  Company Number: US-OTSUKA-2016_021351

PATIENT
  Sex: Male

DRUGS (1)
  1. SAMSCA [Suspect]
     Indication: HYPONATRAEMIA
     Dosage: UNK, QD
     Route: 048
     Dates: start: 2013

REACTIONS (1)
  - Incorrect drug administration duration [Unknown]
